FAERS Safety Report 14674656 (Version 1)
Quarter: 2018Q1

REPORT INFORMATION
  Report Type: Report from Study
  Country: US (occurrence: US)
  Receive Date: 20180323
  Receipt Date: 20180323
  Transmission Date: 20180509
  Serious: Yes (Other)
  Sender: FDA-Public Use
  Company Number: US-JNJFOC-20180330585

PATIENT
  Sex: Female

DRUGS (11)
  1. UNISOM SLEEPTABS [Concomitant]
     Active Substance: DOXYLAMINE SUCCINATE
  2. IMBRUVICA [Suspect]
     Active Substance: IBRUTINIB
     Indication: CHRONIC LYMPHOCYTIC LEUKAEMIA
     Route: 048
     Dates: start: 20170601
  3. VITAMIN D3 [Concomitant]
     Active Substance: CHOLECALCIFEROL
  4. ADVIL PM [Concomitant]
     Active Substance: DIPHENHYDRAMINE CITRATE\IBUPROFEN
  5. TUMS [Concomitant]
     Active Substance: CALCIUM CARBONATE
  6. MELATONIN [Concomitant]
     Active Substance: MELATONIN
  7. PREMARIN [Concomitant]
     Active Substance: ESTROGENS, CONJUGATED
  8. ADVIL [Concomitant]
     Active Substance: IBUPROFEN
  9. CENTRUM [Concomitant]
     Active Substance: VITAMINS
  10. ACYCLOVIR. [Concomitant]
     Active Substance: ACYCLOVIR
  11. PEPCID AC [Concomitant]
     Active Substance: FAMOTIDINE

REACTIONS (2)
  - Vomiting [Unknown]
  - Syncope [Unknown]

NARRATIVE: CASE EVENT DATE: 2018
